FAERS Safety Report 6256161-5 (Version None)
Quarter: 2009Q3

REPORT INFORMATION
  Report Type: 
  Country: None (occurrence: None)
  Receive Date: 20090706
  Receipt Date: 20090624
  Transmission Date: 20100115
  Serious: Yes (Hospitalization, Other)
  Sender: FDA-Public Use
  Company Number: PHHY2009CH25184

PATIENT
  Age: 67 Year
  Sex: Male

DRUGS (7)
  1. TEGRETOL [Suspect]
     Indication: GRAND MAL CONVULSION
     Dosage: 400-800 MG/D
     Dates: start: 20080901
  2. TEGRETOL [Interacting]
     Dosage: 400 MG/D
     Dates: start: 20081112
  3. AMLODIPINE [Interacting]
     Indication: HYPERTENSION
     Dosage: 10 MG/DAY
  4. HYDROCHLOROTHIAZIDE [Concomitant]
     Dosage: 12.5 MG/D
  5. URSODIOL [Concomitant]
     Dosage: 750 MG/D
  6. DIOVAN HCT [Concomitant]
     Dosage: 1 DOSAGE FORM/DAY
  7. BISOPROLOL FUMARATE [Concomitant]
     Dosage: 2.5 MG/DAY

REACTIONS (6)
  - ANTICONVULSANT DRUG LEVEL INCREASED [None]
  - ATAXIA [None]
  - DRUG INTERACTION [None]
  - ELECTROENCEPHALOGRAM ABNORMAL [None]
  - PYREXIA [None]
  - SPEECH DISORDER [None]
